FAERS Safety Report 19017269 (Version 1)
Quarter: 2021Q1

REPORT INFORMATION
  Report Type: Spontaneous
  Country: ES (occurrence: ES)
  Receive Date: 20210317
  Receipt Date: 20210317
  Transmission Date: 20210420
  Serious: Yes (Other)
  Sender: FDA-Public Use
  Company Number: ES-ACS-001957

PATIENT
  Age: 74 Year
  Sex: Female

DRUGS (1)
  1. CEFUROXIME. [Suspect]
     Active Substance: CEFUROXIME
     Indication: CATARACT OPERATION
     Dosage: 12.5MG/0.1ML OF IQ
     Route: 031

REACTIONS (4)
  - Corneal oedema [Recovered/Resolved]
  - Off label use [Unknown]
  - Eye inflammation [Recovered/Resolved]
  - Medication error [Unknown]
